FAERS Safety Report 19582638 (Version 1)
Quarter: 2021Q3

REPORT INFORMATION
  Report Type: Spontaneous
  Country: BR (occurrence: BR)
  Receive Date: 20210720
  Receipt Date: 20210720
  Transmission Date: 20211014
  Serious: Yes (Hospitalization, Other)
  Sender: FDA-Public Use
  Company Number: BR-ALVOGEN-2021-ALVOGEN-117255

PATIENT
  Age: 14336 Day
  Sex: Female
  Weight: 79 kg

DRUGS (5)
  1. CODEINE PHOSPHATE/PARACETAMOL [Concomitant]
     Active Substance: ACETAMINOPHEN\CODEINE PHOSPHATE
     Indication: INTRACRANIAL PRESSURE INCREASED
     Route: 048
     Dates: start: 20100101, end: 2021
  2. DIAMOX SEQUELS [Concomitant]
     Active Substance: ACETAZOLAMIDE
     Indication: INTRACRANIAL PRESSURE INCREASED
     Route: 048
     Dates: start: 20190202, end: 2021
  3. ATENOLOL. [Suspect]
     Active Substance: ATENOLOL
     Indication: ARRHYTHMIA
     Route: 048
     Dates: start: 20190101, end: 2021
  4. AMITRIPTYLINE HYDROCHLORIDE. [Concomitant]
     Active Substance: AMITRIPTYLINE HYDROCHLORIDE
     Indication: DEPRESSION
     Dosage: 50.0MG CONTINUOUSLY
     Route: 048
     Dates: start: 20100101, end: 2021
  5. ASTRAZENECA COVID?19 VACCINE [Suspect]
     Active Substance: AZD-1222
     Indication: PRODUCT USED FOR UNKNOWN INDICATION
     Dosage: FIRST DOSE
     Route: 030

REACTIONS (21)
  - Vertigo [Recovering/Resolving]
  - Dizziness [Recovering/Resolving]
  - Arthralgia [Recovering/Resolving]
  - Presyncope [Recovering/Resolving]
  - Thrombosis [Recovering/Resolving]
  - Jaundice [Recovering/Resolving]
  - Nausea [Recovering/Resolving]
  - Pain [Recovering/Resolving]
  - Chest pain [Unknown]
  - Arrhythmia [Unknown]
  - Laryngospasm [Recovering/Resolving]
  - Swelling [Recovering/Resolving]
  - Dyspnoea [Not Recovered/Not Resolved]
  - Blister [Unknown]
  - Dyspnoea [Recovering/Resolving]
  - Headache [Recovering/Resolving]
  - Erythema [Recovering/Resolving]
  - Allergy to vaccine [Unknown]
  - Eye pain [Unknown]
  - Pyrexia [Recovering/Resolving]
  - Fatigue [Not Recovered/Not Resolved]

NARRATIVE: CASE EVENT DATE: 20210607
